FAERS Safety Report 8903662 (Version 3)
Quarter: 2013Q2

REPORT INFORMATION
  Report Type: Spontaneous
  Country: NL (occurrence: NL)
  Receive Date: 20121113
  Receipt Date: 20130627
  Transmission Date: 20140414
  Serious: Yes (Other)
  Sender: FDA-Public Use
  Company Number: NL-MILLENNIUM PHARMACEUTICALS, INC.-2012-07918

PATIENT
  Sex: 0

DRUGS (6)
  1. VELCADE [Suspect]
     Indication: PLASMA CELL MYELOMA
     Dosage: 1.3 MG/M2, CYCLIC
  2. VELCADE [Suspect]
     Dosage: 1.6 MG/M2, CYCLIC
     Dates: end: 20100209
  3. REVLIMID [Suspect]
     Indication: PLASMA CELL MYELOMA
     Dosage: 10 MG, CYCLIC
  4. REVLIMID [Suspect]
     Dosage: 15 MG, CYCLIC
  5. REVLIMID [Suspect]
     Dosage: 20 MG, CYCLIC
  6. DEXAMETHASONE [Suspect]
     Indication: PLASMA CELL MYELOMA
     Dosage: 20 MG, CYCLIC

REACTIONS (1)
  - Myelodysplastic syndrome [Unknown]
